FAERS Safety Report 14921695 (Version 1)
Quarter: 2018Q2

REPORT INFORMATION
  Report Type: Spontaneous
  Country: SE (occurrence: SE)
  Receive Date: 20180522
  Receipt Date: 20180522
  Transmission Date: 20180711
  Serious: Yes (Other)
  Sender: FDA-Public Use
  Company Number: SE-ASTRAZENECA-2018SE65039

PATIENT
  Age: 65 Year
  Sex: Female

DRUGS (1)
  1. ROSUVASTATIN. [Suspect]
     Active Substance: ROSUVASTATIN
     Indication: LIPIDS INCREASED
     Route: 048
     Dates: start: 20180312, end: 20180420

REACTIONS (2)
  - Pain in extremity [Unknown]
  - Product substitution issue [Unknown]

NARRATIVE: CASE EVENT DATE: 201804
